FAERS Safety Report 19903620 (Version 1)
Quarter: 2021Q4

REPORT INFORMATION
  Report Type: Spontaneous
  Country: FI (occurrence: FI)
  Receive Date: 20211001
  Receipt Date: 20211001
  Transmission Date: 20220303
  Serious: Yes (Death)
  Sender: FDA-Public Use
  Company Number: None

PATIENT
  Age: 74 Year
  Sex: Male

DRUGS (4)
  1. RITUXIMAB [Suspect]
     Active Substance: RITUXIMAB
     Indication: Renal vasculitis
     Route: 041
     Dates: start: 20210813, end: 20210813
  2. ALLOPURINOL [Concomitant]
     Active Substance: ALLOPURINOL
     Route: 048
     Dates: start: 20201123
  3. BISOPROLOL [Concomitant]
     Active Substance: BISOPROLOL
     Route: 048
  4. FOLVITE [Concomitant]
     Active Substance: FOLIC ACID
     Route: 048
     Dates: start: 20210608

REACTIONS (6)
  - Lymphopenia [Fatal]
  - Neutropenia [Fatal]
  - Leukopenia [Fatal]
  - Thrombocytopenia [Fatal]
  - Infection [Fatal]
  - Candida sepsis [Fatal]

NARRATIVE: CASE EVENT DATE: 20210819
